FAERS Safety Report 18068114 (Version 1)
Quarter: 2020Q3

REPORT INFORMATION
  Report Type: Spontaneous
  Country: US (occurrence: US)
  Receive Date: 20200724
  Receipt Date: 20200724
  Transmission Date: 20201103
  Serious: No
  Sender: FDA-Public Use
  Company Number: US-PERRIGO-19US014175

PATIENT
  Age: 6 Year
  Sex: Male
  Weight: 12.7 kg

DRUGS (3)
  1. ZANTAC [Concomitant]
     Active Substance: RANITIDINE HYDROCHLORIDE
     Indication: MAST CELL ACTIVATION SYNDROME
     Dosage: UNK
     Route: 065
     Dates: start: 2018
  2. CROMOLYN                           /00082101/ [Concomitant]
     Active Substance: CROMOLYN
     Indication: MAST CELL ACTIVATION SYNDROME
     Dosage: UNK
     Route: 065
     Dates: start: 2018
  3. CHILDRENS CETIRIZINE HYDROCHLORIDE ALLERGY [Suspect]
     Active Substance: CETIRIZINE HYDROCHLORIDE
     Indication: MAST CELL ACTIVATION SYNDROME
     Dosage: 5 MG, BID
     Route: 048
     Dates: start: 201910, end: 201910

REACTIONS (2)
  - Off label use [Recovered/Resolved]
  - Gastrooesophageal reflux disease [Recovered/Resolved]

NARRATIVE: CASE EVENT DATE: 201910
